FAERS Safety Report 4592777-X (Version None)
Quarter: 2005Q1

REPORT INFORMATION
  Report Type: 
  Country: None (occurrence: None)
  Receive Date: 20050228
  Receipt Date: 20050217
  Transmission Date: 20050727
  Serious: Yes (Hospitalization)
  Sender: FDA-Public Use
  Company Number: JP-JNJFOC-20050204325

PATIENT
  Age: 44 Year
  Sex: Male

DRUGS (17)
  1. RISPERDAL [Suspect]
     Indication: DRUG USE FOR UNKNOWN INDICATION
  2. TRIHEXYPHENIDYL HCL [Suspect]
     Indication: DRUG USE FOR UNKNOWN INDICATION
     Route: 049
  3. FLUNITRAZEPAM [Suspect]
     Indication: DRUG USE FOR UNKNOWN INDICATION
     Route: 049
  4. CHLORPROMAZINE/PROMETHAZINE [Suspect]
     Route: 049
  5. CHLORPROMAZINE/PROMETHAZINE [Suspect]
     Route: 049
  6. CHLORPROMAZINE/PROMETHAZINE [Suspect]
     Indication: DRUG USE FOR UNKNOWN INDICATION
     Route: 049
  7. ASPIRIN/DIALUMINATE [Suspect]
     Route: 049
  8. ASPIRIN/DIALUMINATE [Suspect]
     Route: 049
  9. ASPIRIN/DIALUMINATE [Suspect]
     Indication: DRUG USE FOR UNKNOWN INDICATION
     Route: 049
  10. PABRON [Suspect]
     Route: 049
  11. PABRON [Suspect]
     Route: 049
  12. PABRON [Suspect]
     Route: 049
  13. PABRON [Suspect]
     Route: 049
  14. PABRON [Suspect]
     Route: 049
  15. PABRON [Suspect]
     Route: 049
  16. PABRON [Suspect]
     Route: 049
  17. PABRON [Suspect]
     Indication: DRUG USE FOR UNKNOWN INDICATION
     Route: 049

REACTIONS (5)
  - BODY TEMPERATURE DECREASED [None]
  - DEPRESSED LEVEL OF CONSCIOUSNESS [None]
  - DRUG INTERACTION [None]
  - RHABDOMYOLYSIS [None]
  - TREATMENT NONCOMPLIANCE [None]
